FAERS Safety Report 5345877-0 (Version None)
Quarter: 2007Q2

REPORT INFORMATION
  Report Type: 
  Country: None (occurrence: None)
  Receive Date: 20070605
  Receipt Date: 20070529
  Transmission Date: 20071010
  Serious: Yes (Other)
  Sender: FDA-Public Use
  Company Number: US-JNJFOC-20070507025

PATIENT
  Age: 29 Year
  Sex: Female
  Weight: 86.18 kg

DRUGS (5)
  1. EXTRA STRENGTH TYLENOL [Suspect]
  2. EXTRA STRENGTH TYLENOL [Suspect]
     Indication: PAIN
     Dosage: AS NECESSARY
  3. AVONEX [Concomitant]
     Indication: MULTIPLE SCLEROSIS
  4. CLARITIN [Concomitant]
     Indication: MULTIPLE ALLERGIES
     Dosage: AS NECESSARY
  5. CODEINE SUL TAB [Concomitant]
     Indication: PAIN
     Dosage: AS NECESSARY

REACTIONS (2)
  - DYSPNOEA [None]
  - HYPERSENSITIVITY [None]
